FAERS Safety Report 11099974 (Version 1)
Quarter: 2015Q2

REPORT INFORMATION
  Report Type: Report from Study
  Country: US (occurrence: US)
  Receive Date: 20150508
  Receipt Date: 20150508
  Transmission Date: 20150821
  Serious: No
  Sender: FDA-Public Use
  Company Number: US-AMGEN-USASL2015042933

PATIENT
  Age: 60 Year
  Sex: Male

DRUGS (2)
  1. ENBREL [Suspect]
     Active Substance: ETANERCEPT
     Indication: ANKYLOSING SPONDYLITIS
     Dosage: UNK UNK, QWK
     Route: 065
     Dates: start: 20131112, end: 201411
  2. ENBREL [Suspect]
     Active Substance: ETANERCEPT
     Indication: RHEUMATOID ARTHRITIS

REACTIONS (2)
  - General symptom [Not Recovered/Not Resolved]
  - Inflammation [Not Recovered/Not Resolved]

NARRATIVE: CASE EVENT DATE: 201409
